FAERS Safety Report 12885045 (Version 1)
Quarter: 2016Q4

REPORT INFORMATION
  Report Type: Spontaneous
  Country: US (occurrence: US)
  Receive Date: 20161026
  Receipt Date: 20161026
  Transmission Date: 20170207
  Serious: No
  Sender: FDA-Public Use
  Company Number: US-BAYER-2016-205364

PATIENT
  Age: 75 Year
  Sex: Female
  Weight: 63.49 kg

DRUGS (5)
  1. BENEFIBER [Concomitant]
     Active Substance: STARCH, WHEAT
  2. PEPCID [Concomitant]
     Active Substance: FAMOTIDINE
  3. MIRALAX [Suspect]
     Active Substance: POLYETHYLENE GLYCOL 3350
     Indication: GASTROINTESTINAL DISORDER
     Dosage: 0.5 DF, BID
     Route: 048
     Dates: start: 201609
  4. MIRALAX [Suspect]
     Active Substance: POLYETHYLENE GLYCOL 3350
     Indication: GASTROINTESTINAL DISORDER
     Dosage: 0.5 DF, BID
     Route: 048
     Dates: end: 20161022
  5. MIRALAX [Suspect]
     Active Substance: POLYETHYLENE GLYCOL 3350
     Indication: GASTROINTESTINAL DISORDER
     Dosage: 0.5 DF, BID
     Route: 048
     Dates: start: 20161023

REACTIONS (1)
  - Product use issue [None]
